FAERS Safety Report 8771147 (Version 1)
Quarter: 2012Q4

REPORT INFORMATION
  Report Type: 
  Country: DK (occurrence: JP)
  Receive Date: 20120905
  Receipt Date: 20120905
  Transmission Date: 20130627
  Serious: Yes (Other)
  Sender: FDA-Public Use
  Company Number: JP-FRI-1000038347

PATIENT
  Age: 72 Year
  Sex: Male

DRUGS (5)
  1. LEXAPRO [Suspect]
     Dosage: 10 mg
     Route: 048
     Dates: start: 20120708, end: 20120711
  2. SERMION [Concomitant]
     Indication: DYSARTHRIA
     Dosage: 15 mg
     Route: 048
     Dates: start: 20120525
  3. DEPAS [Concomitant]
     Indication: INSOMNIA
     Dosage: 0.5 mg
     Route: 048
     Dates: start: 20120525, end: 20120706
  4. DEPAS [Concomitant]
     Dosage: 1 mg
     Route: 048
     Dates: start: 20120707, end: 20120711
  5. ETISEDAN [Concomitant]
     Dosage: 1 mg
     Route: 048
     Dates: start: 20120612

REACTIONS (1)
  - Convulsion [Recovered/Resolved]
